FAERS Safety Report 12796780 (Version 2)
Quarter: 2016Q4

REPORT INFORMATION
  Report Type: Spontaneous
  Country: JP (occurrence: JP)
  Receive Date: 20160929
  Receipt Date: 20161004
  Transmission Date: 20170207
  Serious: Yes (Hospitalization, Other)
  Sender: FDA-Public Use
  Company Number: JP-ABBVIE-16P-087-1741314-00

PATIENT
  Age: 50 Year
  Sex: Male

DRUGS (1)
  1. VIEKIRAX [Suspect]
     Active Substance: OMBITASVIR\PARITAPREVIR\RITONAVIR
     Indication: HEPATITIS C
     Route: 048
     Dates: start: 20160901, end: 20160930

REACTIONS (5)
  - Headache [Unknown]
  - Paralysis [Unknown]
  - Nausea [Unknown]
  - Cerebral haemorrhage [Unknown]
  - Seizure [Unknown]

NARRATIVE: CASE EVENT DATE: 201609
